FAERS Safety Report 15416397 (Version 23)
Quarter: 2023Q1

REPORT INFORMATION
  Report Type: Report from Study
  Country: CA (occurrence: CA)
  Receive Date: 20180924
  Receipt Date: 20230316
  Transmission Date: 20230418
  Serious: Yes (Death, Hospitalization, Other)
  Sender: FDA-Public Use
  Company Number: PHHY2018CA099961

PATIENT
  Age: 71 Year
  Sex: Male

DRUGS (6)
  1. SANDOSTATIN LAR DEPOT [Suspect]
     Active Substance: OCTREOTIDE ACETATE
     Indication: Neuroendocrine tumour
     Dosage: 20 MG, QMO
     Route: 030
     Dates: start: 20150101
  2. SANDOSTATIN LAR DEPOT [Suspect]
     Active Substance: OCTREOTIDE ACETATE
     Indication: Carcinoid tumour
  3. SANDOSTATIN LAR DEPOT [Suspect]
     Active Substance: OCTREOTIDE ACETATE
  4. METOPROLOL [Concomitant]
     Active Substance: METOPROLOL
     Indication: Product used for unknown indication
     Dosage: UNK, QD (DIE)
     Route: 048
  5. PANTOPRAZOLE SODIUM [Concomitant]
     Active Substance: PANTOPRAZOLE SODIUM
     Indication: Product used for unknown indication
     Dosage: UNK
     Route: 065
  6. RANITIDINE [Concomitant]
     Active Substance: RANITIDINE
     Indication: Product used for unknown indication
     Dosage: UNK
     Route: 065

REACTIONS (16)
  - Death [Fatal]
  - Stoma site haemorrhage [Unknown]
  - Haemoglobin decreased [Unknown]
  - Platelet disorder [Unknown]
  - Full blood count abnormal [Unknown]
  - Asthenia [Unknown]
  - Nephrolithiasis [Unknown]
  - Psychotic symptom [Unknown]
  - Blood pressure systolic increased [Unknown]
  - Pain [Unknown]
  - Gastrointestinal pain [Unknown]
  - Flank pain [Unknown]
  - Urinary tract infection [Unknown]
  - Platelet count decreased [Unknown]
  - Abdominal pain [Unknown]
  - Injection site pain [Unknown]

NARRATIVE: CASE EVENT DATE: 20180911
